FAERS Safety Report 22179189 (Version 2)
Quarter: 2023Q2

REPORT INFORMATION
  Report Type: Report from Study
  Country: BG (occurrence: BG)
  Receive Date: 20230406
  Receipt Date: 20230614
  Transmission Date: 20230721
  Serious: Yes (Hospitalization, Other)
  Sender: FDA-Public Use
  Company Number: BG-ABBVIE-4717486

PATIENT
  Age: 68 Year
  Sex: Female

DRUGS (1)
  1. SKYRIZI [Suspect]
     Active Substance: RISANKIZUMAB-RZAA
     Indication: Psoriasis
     Dosage: 2 FL. EVERY 84 DAYS
     Route: 058
     Dates: start: 202109

REACTIONS (3)
  - Haemoglobin decreased [Unknown]
  - Blood iron decreased [Unknown]
  - Colon cancer [Unknown]
